FAERS Safety Report 18624115 (Version 2)
Quarter: 2021Q1

REPORT INFORMATION
  Report Type: Spontaneous
  Country: US (occurrence: US)
  Receive Date: 20201216
  Receipt Date: 20210107
  Transmission Date: 20210419
  Serious: No
  Sender: FDA-Public Use
  Company Number: US-PFIZER INC-2020494331

PATIENT
  Age: 37 Year
  Sex: Female
  Weight: 72.57 kg

DRUGS (1)
  1. LIOTHYRONINE SODIUM. [Suspect]
     Active Substance: LIOTHYRONINE SODIUM
     Indication: HYPERTHYROIDISM
     Dosage: 15 UG, TWICE DAILY (TAKE THREE TWICE DAILY BY MOUTH)
     Route: 048
     Dates: start: 2012

REACTIONS (10)
  - Fatigue [Recovered/Resolved]
  - Sleep disorder [Recovered/Resolved]
  - Feeding disorder [Recovered/Resolved]
  - Somnolence [Unknown]
  - Heart rate increased [Recovered/Resolved]
  - Irritable bowel syndrome [Recovered/Resolved]
  - Off label use [Unknown]
  - Malaise [Unknown]
  - Weight increased [Unknown]
  - Depression [Unknown]

NARRATIVE: CASE EVENT DATE: 2012
